FAERS Safety Report 15837673 (Version 1)
Quarter: 2019Q1

REPORT INFORMATION
  Report Type: Spontaneous
  Country: US (occurrence: US)
  Receive Date: 20190117
  Receipt Date: 20190117
  Transmission Date: 20190417
  Serious: No
  Sender: FDA-Public Use
  Company Number: US-ASTRAZENECA-2019SE05196

PATIENT

DRUGS (1)
  1. BYDUREON BCISE [Suspect]
     Active Substance: EXENATIDE
     Indication: DIABETES MELLITUS
     Route: 065

REACTIONS (8)
  - Rhinorrhoea [Unknown]
  - Vomiting [Unknown]
  - Dehydration [Unknown]
  - Product dose omission [Unknown]
  - Diarrhoea [Unknown]
  - Weight decreased [Unknown]
  - Gastroenteritis viral [Unknown]
  - Sneezing [Unknown]
